FAERS Safety Report 23421229 (Version 1)
Quarter: 2024Q1

REPORT INFORMATION
  Report Type: Report from Study
  Country: US (occurrence: None)
  Receive Date: 20240119
  Receipt Date: 20240119
  Transmission Date: 20240410
  Serious: Yes (Hospitalization, Other)
  Sender: FDA-Public Use
  Company Number: 2023A266032

PATIENT
  Sex: Male
  Weight: 99.8 kg

DRUGS (3)
  1. FARXIGA [Suspect]
     Active Substance: DAPAGLIFLOZIN PROPANEDIOL
     Route: 048
  2. OMEPRAZOLE [Suspect]
     Active Substance: OMEPRAZOLE
     Route: 048
  3. ROSUVASTATIN [Suspect]
     Active Substance: ROSUVASTATIN
     Route: 048

REACTIONS (18)
  - Urinary tract obstruction [Unknown]
  - Asthenia [Unknown]
  - Acute kidney injury [Unknown]
  - Blood cholesterol increased [Unknown]
  - Diabetic neuropathy [Unknown]
  - Hypertension [Unknown]
  - Hyponatraemia [Unknown]
  - Hypophosphataemia [Unknown]
  - Hypocalcaemia [Unknown]
  - Alcoholism [Unknown]
  - Aspartate aminotransferase increased [Unknown]
  - Lactic acidosis [Unknown]
  - Corynebacterium bacteraemia [Unknown]
  - Obesity [Unknown]
  - Thrombocytopenia [Unknown]
  - Cystitis [Unknown]
  - Urinary tract infection [Unknown]
  - Glycosylated haemoglobin increased [Unknown]
